FAERS Safety Report 21052532 (Version 1)
Quarter: 2022Q3

REPORT INFORMATION
  Report Type: Spontaneous
  Country: US (occurrence: US)
  Receive Date: 20220707
  Receipt Date: 20220707
  Transmission Date: 20221026
  Serious: Yes (Other)
  Sender: FDA-Public Use
  Company Number: US-SA-SAC20220705000190

PATIENT
  Age: 51 Year
  Sex: Female

DRUGS (1)
  1. ZANTAC [Suspect]
     Active Substance: RANITIDINE HYDROCHLORIDE
     Indication: Dyspepsia
     Dosage: UNK, QD
     Route: 065
     Dates: start: 198001, end: 198001

REACTIONS (3)
  - Breast cancer stage III [Recovering/Resolving]
  - Uterine cancer [Recovering/Resolving]
  - Cervix carcinoma stage I [Recovering/Resolving]

NARRATIVE: CASE EVENT DATE: 20060901
